FAERS Safety Report 25900064 (Version 1)
Quarter: 2025Q4

REPORT INFORMATION
  Report Type: Spontaneous
  Country: JP (occurrence: JP)
  Receive Date: 20251009
  Receipt Date: 20251009
  Transmission Date: 20260118
  Serious: Yes (Other)
  Sender: Haleon PLC
  Company Number: JP-002147023-NVSJ2024JP004559

PATIENT
  Sex: Male

DRUGS (2)
  1. DICLOFENAC [Suspect]
     Active Substance: DICLOFENAC
     Indication: Back pain
     Dosage: DAILY DOSE(S): UNK?THERAPY DATES: UNK?THERAPY DURATION: UNK
     Route: 048
  2. ETIZOLAM [Concomitant]
     Active Substance: ETIZOLAM

REACTIONS (2)
  - Myocardial infarction [Unknown]
  - Visual impairment [Unknown]
